FAERS Safety Report 5537905-4 (Version None)
Quarter: 2007Q4

REPORT INFORMATION
  Report Type: 
  Country: None (occurrence: None)
  Receive Date: 20071207
  Receipt Date: 20071129
  Transmission Date: 20080405
  Serious: Yes (Hospitalization)
  Sender: FDA-Public Use
  Company Number: US-BAYER-200715284NA

PATIENT
  Age: 23 Year
  Sex: Female
  Weight: 48 kg

DRUGS (2)
  1. YASMIN [Suspect]
     Indication: CONTRACEPTION
     Route: 048
     Dates: start: 20070801, end: 20071101
  2. UNSPECIFIED MEDICATION REGIMEN FOR HEPATITIS C [Concomitant]
     Indication: HEPATITIS C

REACTIONS (2)
  - MOOD SWINGS [None]
  - SUICIDAL IDEATION [None]
